FAERS Safety Report 9402437 (Version 2)
Quarter: 2013Q3

REPORT INFORMATION
  Report Type: Spontaneous
  Country: US (occurrence: US)
  Receive Date: 20130716
  Receipt Date: 20130724
  Transmission Date: 20140515
  Serious: No
  Sender: FDA-Public Use
  Company Number: US-009507513-1307USA006757

PATIENT
  Age: 24 Year
  Sex: Female

DRUGS (2)
  1. SAPHRIS [Suspect]
     Indication: SCHIZOPHRENIA
     Dosage: UNK
     Dates: start: 20081030
  2. SAPHRIS [Suspect]
     Dosage: UNK
     Dates: start: 20091116

REACTIONS (5)
  - Nausea [Unknown]
  - Incoherent [Unknown]
  - Myalgia [Unknown]
  - Drug effect incomplete [Unknown]
  - Drug ineffective [Unknown]
